FAERS Safety Report 6779436-X (Version None)
Quarter: 2010Q2

REPORT INFORMATION
  Report Type: 
  Country: None (occurrence: None)
  Receive Date: 20100618
  Receipt Date: 20100609
  Transmission Date: 20101027
  Serious: Yes (Disabling)
  Sender: FDA-Public Use
  Company Number: JP-ASTRAZENECA-2010SE24776

PATIENT
  Age: 67 Year
  Sex: Female

DRUGS (2)
  1. ARIMIDEX [Suspect]
     Indication: BREAST CANCER
     Route: 048
     Dates: start: 20090602
  2. ALLEGRA [Concomitant]
     Dosage: DOSE UNKNOWN
     Route: 048
     Dates: start: 20090101

REACTIONS (1)
  - EYELID PTOSIS [None]
